FAERS Safety Report 16208588 (Version 1)
Quarter: 2019Q2

REPORT INFORMATION
  Report Type: Spontaneous
  Country: BR (occurrence: BR)
  Receive Date: 20190417
  Receipt Date: 20190417
  Transmission Date: 20190711
  Serious: Yes (Other)
  Sender: FDA-Public Use
  Company Number: BR-PFIZER INC-2014027938

PATIENT
  Age: 78 Year
  Sex: Female

DRUGS (3)
  1. XALATAN [Suspect]
     Active Substance: LATANOPROST
     Dosage: 2 GTT, DAILY (1 DROP IN EACH EYE)
     Route: 047
  2. XALATAN [Suspect]
     Active Substance: LATANOPROST
     Indication: GLAUCOMA
     Dosage: 2 GTT, DAILY (1 DROP IN EACH EYE)
     Route: 047
  3. COSOPT [Concomitant]
     Active Substance: DORZOLAMIDE HYDROCHLORIDE\TIMOLOL MALEATE
     Dosage: 2 DROPS IN EACH EYE, DAILY

REACTIONS (6)
  - Cataract [Unknown]
  - Product storage error [Unknown]
  - Vision blurred [Recovered/Resolved]
  - Memory impairment [Recovered/Resolved]
  - Pain [Unknown]
  - Bone disorder [Not Recovered/Not Resolved]
